FAERS Safety Report 17682535 (Version 3)
Quarter: 2020Q3

REPORT INFORMATION
  Report Type: Report from Study
  Country: US (occurrence: US)
  Receive Date: 20200418
  Receipt Date: 20200724
  Transmission Date: 20201102
  Serious: Yes (Death, Life-Threatening, Hospitalization, Other)
  Sender: FDA-Public Use
  Company Number: NVSC2020US104000

PATIENT
  Age: 73 Year
  Sex: Female
  Weight: 95.24 kg

DRUGS (10)
  1. LISINOPRIL. [Concomitant]
     Active Substance: LISINOPRIL
     Indication: HYPERTENSION
     Dosage: UNK
     Route: 065
     Dates: start: 1980
  2. ACYCLOVIR. [Concomitant]
     Active Substance: ACYCLOVIR
     Indication: PRODUCT USED FOR UNKNOWN INDICATION
     Dosage: UNK
     Route: 065
     Dates: start: 20200327
  3. FLUCONAZOLE. [Concomitant]
     Active Substance: FLUCONAZOLE
     Indication: PRODUCT USED FOR UNKNOWN INDICATION
     Dosage: UNK
     Route: 065
     Dates: start: 20200325
  4. PROLEUKIN [Suspect]
     Active Substance: ALDESLEUKIN
     Dosage: 62000000 IU, BID
     Route: 042
     Dates: start: 20200325, end: 20200326
  5. AMLODIPINE [Concomitant]
     Active Substance: AMLODIPINE BESYLATE
     Indication: HYPERTENSION
     Dosage: UNK
     Route: 065
     Dates: start: 1980
  6. PROLEUKIN [Suspect]
     Active Substance: ALDESLEUKIN
     Indication: CERVIX CANCER METASTATIC
     Dosage: 9.523 MG
     Route: 042
     Dates: start: 20200310
  7. PEMBROLIZUMAB. [Suspect]
     Active Substance: PEMBROLIZUMAB
     Indication: CERVIX CANCER METASTATIC
     Dosage: 200 MG, Q3W
     Route: 042
     Dates: start: 20200310, end: 20200407
  8. BACTRIM [Concomitant]
     Active Substance: SULFAMETHOXAZOLE\TRIMETHOPRIM
     Indication: PRODUCT USED FOR UNKNOWN INDICATION
     Dosage: UNK
     Route: 065
     Dates: start: 20200407
  9. FLUDARABINE PHOSPHATE. [Suspect]
     Active Substance: FLUDARABINE PHOSPHATE
     Indication: CERVIX CANCER METASTATIC
     Dosage: 45 MG, QD
     Route: 042
     Dates: start: 20200319, end: 20200323
  10. CYCLOPHOSPHAMIDE. [Suspect]
     Active Substance: CYCLOPHOSPHAMIDE
     Indication: CERVIX CANCER METASTATIC
     Dosage: 6200 MG, QD
     Route: 042
     Dates: start: 20200317, end: 20200318

REACTIONS (7)
  - Neoplasm malignant [Fatal]
  - Vision blurred [Not Recovered/Not Resolved]
  - Colitis [Not Recovered/Not Resolved]
  - Atrial fibrillation [Recovered/Resolved]
  - Bacteraemia [Not Recovered/Not Resolved]
  - Myocarditis [Not Recovered/Not Resolved]
  - Respiratory failure [Recovered/Resolved with Sequelae]

NARRATIVE: CASE EVENT DATE: 20200407
